FAERS Safety Report 24070031 (Version 1)
Quarter: 2024Q3

REPORT INFORMATION
  Report Type: Report from Study
  Country: ZA (occurrence: ZA)
  Receive Date: 20240710
  Receipt Date: 20240710
  Transmission Date: 20241017
  Serious: No
  Sender: ROCHE
  Company Number: ZA-ROCHE-3571798

PATIENT
  Sex: Female

DRUGS (2)
  1. VABYSMO [Suspect]
     Active Substance: FARICIMAB\FARICIMAB-SVOA
     Indication: Macular degeneration
     Dosage: 2ND DOSE: 21/05/2024 (8 WEEKLY) AND 3RD DOSE: 02/07/2024 (6 WEEKLY)
     Route: 050
     Dates: start: 20240326
  2. VABYSMO [Suspect]
     Active Substance: FARICIMAB\FARICIMAB-SVOA
     Dosage: 3RD DOSE: 02/07/2024 (6 WEEKLY)
     Route: 050
     Dates: start: 20240521

REACTIONS (2)
  - Off label use [Unknown]
  - No adverse event [Unknown]
